FAERS Safety Report 19467626 (Version 1)
Quarter: 2021Q2

REPORT INFORMATION
  Report Type: Spontaneous
  Country: US (occurrence: US)
  Receive Date: 20210628
  Receipt Date: 20210628
  Transmission Date: 20210717
  Serious: No
  Sender: FDA-Public Use
  Company Number: None

PATIENT
  Age: 74 Year
  Sex: Male
  Weight: 112 kg

DRUGS (1)
  1. CEFTRIAXONE (CEFTRIAXONE NA 1GM/VIL INJ) [Suspect]
     Active Substance: CEFTRIAXONE SODIUM
     Indication: CELLULITIS
     Route: 042
     Dates: start: 20210413, end: 20210413

REACTIONS (3)
  - Hypotension [None]
  - Angioedema [None]
  - Anaphylactic reaction [None]

NARRATIVE: CASE EVENT DATE: 20210413
